FAERS Safety Report 4987714-X (Version None)
Quarter: 2006Q2

REPORT INFORMATION
  Report Type: 
  Country: None (occurrence: None)
  Receive Date: 20060428
  Receipt Date: 20060428
  Transmission Date: 20061013
  Serious: Yes (Death)
  Sender: FDA-Public Use
  Company Number: None

PATIENT
  Age: 23 Year
  Sex: Female
  Weight: 53 kg

DRUGS (2)
  1. LAMICTAL [Suspect]
     Indication: HEADACHE
     Dosage: 100 MG Q HS PO
     Route: 048
  2. LAMICTAL [Suspect]
     Indication: PROPHYLAXIS
     Dosage: 100 MG Q HS PO
     Route: 048

REACTIONS (8)
  - ANAEMIA [None]
  - ASTHENIA [None]
  - CEREBRAL HAEMORRHAGE [None]
  - CONTUSION [None]
  - LOSS OF CONSCIOUSNESS [None]
  - MENORRHAGIA [None]
  - THERAPY NON-RESPONDER [None]
  - THROMBOCYTOPENIA [None]
